FAERS Safety Report 4392690-7 (Version None)
Quarter: 2004Q3

REPORT INFORMATION
  Report Type: 
  Country: None (occurrence: None)
  Receive Date: 20040701
  Receipt Date: 20040624
  Transmission Date: 20050211
  Serious: Yes (Hospitalization, Other)
  Sender: FDA-Public Use
  Company Number: 2004215117US

PATIENT
  Age: 40 Year
  Sex: Female
  Weight: 62.1 kg

DRUGS (2)
  1. DEPO-PROVERA [Suspect]
     Indication: CERVICAL CYST
     Dosage: SEE IMAGE
     Route: 030
     Dates: start: 20011007, end: 20011017
  2. DEPO-PROVERA [Suspect]
     Indication: CERVICAL CYST
     Dosage: SEE IMAGE
     Route: 030
     Dates: start: 20030915, end: 20030915

REACTIONS (12)
  - ABDOMINAL PAIN UPPER [None]
  - DEPRESSION [None]
  - DIZZINESS [None]
  - EAR PAIN [None]
  - MYALGIA [None]
  - NAUSEA [None]
  - NERVOUSNESS [None]
  - PALPITATIONS [None]
  - PANIC ATTACK [None]
  - PARANOIA [None]
  - SINUS PAIN [None]
  - STRESS SYMPTOMS [None]
